FAERS Safety Report 7301233-7 (Version None)
Quarter: 2010Q4

REPORT INFORMATION
  Report Type: 
  Country: None (occurrence: None)
  Receive Date: 20101229
  Receipt Date: 20100922
  Transmission Date: 20110411
  Serious: No
  Sender: FDA-Public Use
  Company Number: 1000016416

PATIENT
  Age: 77 Year
  Sex: Male

DRUGS (7)
  1. BYSTOLIC [Suspect]
     Indication: HYPERTENSION
     Dosage: 5 MG (5 MG, 1 IN 1 D), ORAL
     Route: 048
     Dates: start: 20100301
  2. LISINOPRIL [Concomitant]
  3. PREDNISONE [Concomitant]
  4. NORVASC [Concomitant]
  5. POTASSIUM (POTASSIUM) (POTASSIUM) [Concomitant]
  6. LASIX [Concomitant]
  7. FOSAMAX [Concomitant]

REACTIONS (1)
  - BLOOD BILIRUBIN INCREASED [None]
